FAERS Safety Report 7258087-7 (Version None)
Quarter: 2011Q1

REPORT INFORMATION
  Report Type: 
  Country: None (occurrence: None)
  Receive Date: 20110129
  Receipt Date: 20100714
  Transmission Date: 20110831
  Serious: No
  Sender: FDA-Public Use
  Company Number: US-ABBOTT-10P-163-0657223-00

PATIENT
  Age: 79 Year
  Sex: Female

DRUGS (4)
  1. RYTHMOL [Concomitant]
     Indication: HEART RATE INCREASED
  2. ATIVAN [Concomitant]
     Indication: ANXIETY
  3. HUMIRA [Suspect]
     Indication: RHEUMATOID ARTHRITIS
     Dates: start: 20100625
  4. PREDNISONE [Concomitant]
     Indication: RHEUMATOID ARTHRITIS
     Dosage: THIS WILL BE GRADUALLY REDUCED

REACTIONS (7)
  - FATIGUE [None]
  - HEART RATE INCREASED [None]
  - GASTROOESOPHAGEAL REFLUX DISEASE [None]
  - GINGIVAL PAIN [None]
  - ABDOMINAL DISTENSION [None]
  - ASTHENIA [None]
  - GINGIVAL SWELLING [None]
